FAERS Safety Report 7641393-1 (Version None)
Quarter: 2011Q3

REPORT INFORMATION
  Report Type: 
  Country: None (occurrence: None)
  Receive Date: 20110728
  Receipt Date: 20110720
  Transmission Date: 20111222
  Serious: Yes (Other)
  Sender: FDA-Public Use
  Company Number: US-SANOFI-AVENTIS-2011SA047547

PATIENT
  Sex: Female

DRUGS (5)
  1. ALLEGRA [Concomitant]
     Indication: ALLERGIC SINUSITIS
  2. SOLOSTAR [Suspect]
     Indication: TYPE 2 DIABETES MELLITUS
     Dates: start: 20080101
  3. REGULAR INSULIN [Concomitant]
     Indication: BLOOD GLUCOSE INCREASED
  4. LANTUS [Suspect]
     Indication: TYPE 2 DIABETES MELLITUS
     Dosage: DOSE:28 UNIT(S)
     Route: 058
     Dates: start: 20080101
  5. METFORMIN HCL [Concomitant]
     Indication: TYPE 2 DIABETES MELLITUS
     Dosage: 2 PILLS TWICE DAILY
     Dates: start: 20080101

REACTIONS (3)
  - BLOOD GLUCOSE INCREASED [None]
  - PRODUCT QUALITY ISSUE [None]
  - KNEE ARTHROPLASTY [None]
